FAERS Safety Report 10068301 (Version 1)
Quarter: 2014Q2

REPORT INFORMATION
  Report Type: Spontaneous
  Country: US (occurrence: US)
  Receive Date: 20140409
  Receipt Date: 20140409
  Transmission Date: 20141212
  Serious: No
  Sender: FDA-Public Use
  Company Number: US-PFIZER INC-2014098469

PATIENT
  Age: 56 Year
  Sex: Male
  Weight: 107 kg

DRUGS (9)
  1. GABAPENTIN [Suspect]
     Indication: DIABETIC NEUROPATHY
     Dosage: 150 MG, 3X/DAY
  2. HYDROXYCHLOROQUINE [Concomitant]
     Indication: OSTEOARTHRITIS
     Dosage: 200 MG, 2X/DAY
  3. FUROSEMIDE [Concomitant]
     Indication: OEDEMA PERIPHERAL
     Dosage: 40 MG, DAILY
  4. FUROSEMIDE [Concomitant]
     Indication: FLUID RETENTION
  5. HYDROCODONE [Concomitant]
     Indication: PAIN
     Dosage: UNK (1-2 TABLETS), EVERY 4 HRS
  6. CLONAZEPAM [Concomitant]
     Indication: ANXIETY
     Dosage: 1 DF, 3X/DAY
  7. KLOR CON [Concomitant]
     Indication: BLOOD POTASSIUM DECREASED
     Dosage: 10 MG, DAILY
  8. METFORMIN [Concomitant]
     Indication: DIABETES MELLITUS
     Dosage: 500 MG, DAILY
  9. VITAMIN D [Concomitant]
     Dosage: 1 DF, DAILY

REACTIONS (1)
  - Drug ineffective [Unknown]
